FAERS Safety Report 6052620-9 (Version None)
Quarter: 2009Q1

REPORT INFORMATION
  Report Type: 
  Country: None (occurrence: None)
  Receive Date: 20090127
  Receipt Date: 20090126
  Transmission Date: 20090719
  Serious: Yes (Death, Other)
  Sender: FDA-Public Use
  Company Number: US-BAYER-200833479NA

PATIENT
  Sex: Female

DRUGS (1)
  1. BETASERON [Suspect]
     Indication: UNEVALUABLE EVENT

REACTIONS (4)
  - CARDIO-RESPIRATORY ARREST [None]
  - MULTIPLE SCLEROSIS [None]
  - PNEUMONIA ASPIRATION [None]
  - RENAL FAILURE [None]
